FAERS Safety Report 19090401 (Version 1)
Quarter: 2021Q2

REPORT INFORMATION
  Report Type: Spontaneous
  Country: BR (occurrence: BR)
  Receive Date: 20210405
  Receipt Date: 20210405
  Transmission Date: 20210717
  Serious: Yes (Death, Other)
  Sender: FDA-Public Use
  Company Number: BR-CELLTRION INC.-2021BR003456

PATIENT

DRUGS (7)
  1. ONDANSETRONA [Concomitant]
     Indication: PREMEDICATION
  2. TRUXIMA [Suspect]
     Active Substance: RITUXIMAB-ABBS
     Indication: NON-HODGKIN^S LYMPHOMA
     Dosage: UNK
     Route: 042
     Dates: start: 20210218
  3. VINCRISTINA [VINCRISTINE] [Concomitant]
     Active Substance: VINCRISTINE
  4. PARACETAMOL [Concomitant]
     Active Substance: ACETAMINOPHEN
     Indication: PREMEDICATION
  5. DIFENIDRAMINA [Concomitant]
     Active Substance: DIPHENHYDRAMINE
     Indication: PREMEDICATION
  6. CYCLOPHOSPHAMIDE. [Concomitant]
     Active Substance: CYCLOPHOSPHAMIDE
  7. HIDROCORTISONA [HYDROCORTISONE] [Concomitant]
     Active Substance: HYDROCORTISONE
     Indication: PREMEDICATION

REACTIONS (3)
  - Disease progression [Fatal]
  - Tremor [Recovered/Resolved]
  - Chills [Recovered/Resolved]

NARRATIVE: CASE EVENT DATE: 20210218
